FAERS Safety Report 9500358 (Version 1)
Quarter: 2013Q1

REPORT INFORMATION
  Report Type: Spontaneous
  Country: US (occurrence: None)
  Receive Date: 20130118
  Receipt Date: 20130118
  Transmission Date: 20140127
  Serious: Yes (Hospitalization)
  Sender: FDA-Public Use
  Company Number: A-US2011-57716

PATIENT
  Age: 92 Year
  Sex: Female

DRUGS (1)
  1. TRACLEER [Suspect]
     Route: 048
     Dates: start: 20111107, end: 201111

REACTIONS (3)
  - Cardiac failure [None]
  - Swelling [None]
  - Dyspnoea [None]
